FAERS Safety Report 19420439 (Version 1)
Quarter: 2021Q2

REPORT INFORMATION
  Report Type: Other
  Country: IN (occurrence: IN)
  Receive Date: 20210616
  Receipt Date: 20210616
  Transmission Date: 20210717
  Serious: Yes (Other)
  Sender: FDA-Public Use
  Company Number: IN-ENCUBE-000088

PATIENT
  Age: 60 Year
  Sex: Male

DRUGS (1)
  1. DICLOFENAC SODIUM. [Suspect]
     Active Substance: DICLOFENAC SODIUM
     Indication: HEADACHE
     Dosage: ONE DOSE OF INJECTION DICLOFENAC IM IN THE LEFT BUTTOCK
     Route: 030

REACTIONS (4)
  - Acinetobacter infection [Unknown]
  - Condition aggravated [Recovered/Resolved]
  - Klebsiella infection [Unknown]
  - Embolia cutis medicamentosa [Recovered/Resolved]
